FAERS Safety Report 7318337-5 (Version None)
Quarter: 2011Q1

REPORT INFORMATION
  Report Type: 
  Country: None (occurrence: None)
  Receive Date: 20110218
  Receipt Date: 20110218
  Transmission Date: 20110831
  Serious: Yes (Hospitalization)
  Sender: FDA-Public Use
  Company Number: None

PATIENT
  Age: 64 Year
  Sex: Male
  Weight: 107.3 kg

DRUGS (24)
  1. VIT D [Concomitant]
  2. ZYRTEC [Concomitant]
  3. LOVENOX [Suspect]
     Indication: CORONARY ARTERY DISEASE
     Dosage: 150 MG DAILY PO CHRONIC
     Route: 048
  4. METOPROLOL [Concomitant]
  5. ACIPHEX [Concomitant]
  6. OXYCODONE/TYLENOL [Concomitant]
  7. PREDNISONE [Concomitant]
  8. ATRIPLA [Concomitant]
  9. ATIVAN [Concomitant]
  10. LISINOPRIL [Concomitant]
  11. VINCRISTINE [Concomitant]
  12. LYRICA [Concomitant]
  13. STOOL SOFTENER [Concomitant]
  14. NOVOLOG [Concomitant]
  15. NORTRIPTYLINE [Concomitant]
  16. UROXATRAL [Concomitant]
  17. COMPAZINE [Concomitant]
  18. SIMVASTATIN [Concomitant]
  19. LANTUS [Concomitant]
  20. METOCLOPRAMIDE HCL [Concomitant]
  21. BENADRYL [Concomitant]
  22. ALKERAN [Concomitant]
  23. CARMUSTINE [Concomitant]
  24. CYCLOPHOSPHAMIDE [Concomitant]

REACTIONS (2)
  - THROMBOCYTOPENIA [None]
  - EPISTAXIS [None]
